FAERS Safety Report 6212822-5 (Version None)
Quarter: 2009Q2

REPORT INFORMATION
  Report Type: 
  Country: None (occurrence: None)
  Receive Date: 20090601
  Receipt Date: 20090519
  Transmission Date: 20091009
  Serious: Yes (Death, Hospitalization)
  Sender: FDA-Public Use
  Company Number: 2009-01855

PATIENT
  Age: 75 Year
  Sex: Male
  Weight: 55 kg

DRUGS (2)
  1. VELCADE [Suspect]
     Indication: NON-SMALL CELL LUNG CANCER
     Dosage: 1.6 MG/M2, IV BOLUS
     Route: 040
     Dates: start: 20090415, end: 20090416
  2. TAXOTERE [Suspect]
     Indication: NON-SMALL CELL LUNG CANCER
     Dosage: 2.75 MG/M2, INTRAVENOUS
     Route: 042
     Dates: start: 20090415, end: 20090415

REACTIONS (21)
  - ABDOMINAL PAIN [None]
  - ANOREXIA [None]
  - CLOSTRIDIAL INFECTION [None]
  - CLOSTRIDIUM DIFFICILE COLITIS [None]
  - DEHYDRATION [None]
  - DISEASE PROGRESSION [None]
  - DYSPNOEA [None]
  - FAECAL INCONTINENCE [None]
  - HYPOAESTHESIA [None]
  - HYPOPHAGIA [None]
  - INTERVERTEBRAL DISC DISORDER [None]
  - LEUKOCYTOSIS [None]
  - MUSCULAR WEAKNESS [None]
  - NEUTROPENIA [None]
  - NON-SMALL CELL LUNG CANCER [None]
  - PERIPHERAL SENSORY NEUROPATHY [None]
  - PLATELET COUNT DECREASED [None]
  - RENAL FAILURE ACUTE [None]
  - RESPIRATORY FAILURE [None]
  - UNRESPONSIVE TO STIMULI [None]
  - URINARY INCONTINENCE [None]
